FAERS Safety Report 10420288 (Version 1)
Quarter: 2014Q3

REPORT INFORMATION
  Report Type: Report from Study
  Country: US (occurrence: None)
  Receive Date: 20140804
  Receipt Date: 20140804
  Transmission Date: 20150326
  Serious: Yes (Death)
  Sender: FDA-Public Use
  Company Number: 2013US008738

PATIENT
  Age: 60 Year
  Sex: Female
  Weight: 99.8 kg

DRUGS (13)
  1. LABETALOL [Concomitant]
     Active Substance: LABETALOL\LABETALOL HYDROCHLORIDE
  2. KLONOPIN (CLONAZEPAM) [Concomitant]
  3. ASPIRIN (ACETYLSALICYLIC ACID) [Concomitant]
     Active Substance: ASPIRIN
  4. ZOLOFT [Concomitant]
     Active Substance: SERTRALINE HYDROCHLORIDE
  5. PLAVIX (CLOPIDOGREL BISULFATE) [Concomitant]
  6. LISINOPRIL. [Concomitant]
     Active Substance: LISINOPRIL
  7. GLASSIA [Suspect]
     Active Substance: .ALPHA.1-PROTEINASE INHIBITOR HUMAN
     Indication: ALPHA-1 ANTI-TRYPSIN DEFICIENCY
     Dosage: 6000 MG, 1/WEEK, INTRAVENOUS
     Route: 042
     Dates: start: 20110921, end: 20130809
  8. LAMICTAL [Concomitant]
     Active Substance: LAMOTRIGINE
  9. TORSEMIDE. [Concomitant]
     Active Substance: TORSEMIDE
  10. DILAUDID [Concomitant]
     Active Substance: HYDROMORPHONE HYDROCHLORIDE
  11. OXYGEN. [Concomitant]
     Active Substance: OXYGEN
  12. PROCARDIA?/00340701/ (NIFEDIPINE) [Concomitant]
  13. SIMVASTATIN. [Concomitant]
     Active Substance: SIMVASTATIN

REACTIONS (9)
  - Chronic obstructive pulmonary disease [None]
  - Carotid bruit [None]
  - Candida infection [None]
  - General physical health deterioration [None]
  - Anxiety [None]
  - Bronchitis [None]
  - Myocardial infarction [None]
  - Hypotension [None]
  - Hyperlipidaemia [None]

NARRATIVE: CASE EVENT DATE: 20120308
